FAERS Safety Report 7783336-6 (Version None)
Quarter: 2011Q3

REPORT INFORMATION
  Report Type: 
  Country: None (occurrence: None)
  Receive Date: 20110927
  Receipt Date: 20110927
  Transmission Date: 20111222
  Serious: No
  Sender: FDA-Public Use
  Company Number: None

PATIENT
  Age: 74 Year
  Sex: Male
  Weight: 139.1 kg

DRUGS (1)
  1. CLINDAMYCIN [Suspect]
     Dosage: 300 MG QID PO
     Route: 048
     Dates: start: 20110408, end: 20110412

REACTIONS (1)
  - DIARRHOEA [None]
